FAERS Safety Report 25358334 (Version 4)
Quarter: 2025Q3

REPORT INFORMATION
  Report Type: Report from Study
  Country: US (occurrence: US)
  Receive Date: 20250526
  Receipt Date: 20250808
  Transmission Date: 20251020
  Serious: No
  Sender: MALLINCKRODT
  Company Number: US-MALLINCKRODT-MNK202502018

PATIENT
  Age: 85 Year
  Sex: Female

DRUGS (2)
  1. CORTICOTROPIN [Suspect]
     Active Substance: CORTICOTROPIN
     Indication: Iridocyclitis
  2. HUMIRA [Concomitant]
     Active Substance: ADALIMUMAB

REACTIONS (12)
  - Gastrointestinal hypomotility [Not Recovered/Not Resolved]
  - Eye swelling [Not Recovered/Not Resolved]
  - Muscle tightness [Unknown]
  - Confusional state [Unknown]
  - Eye pain [Unknown]
  - Muscle spasms [Unknown]
  - Influenza like illness [Unknown]
  - Headache [Unknown]
  - Insomnia [Unknown]
  - Injection site discharge [Unknown]
  - Eye infection [Not Recovered/Not Resolved]
  - Underdose [Unknown]

NARRATIVE: CASE EVENT DATE: 20250527
